FAERS Safety Report 5482052-3 (Version None)
Quarter: 2007Q4

REPORT INFORMATION
  Report Type: 
  Country: None (occurrence: None)
  Receive Date: 20071011
  Receipt Date: 20070928
  Transmission Date: 20080405
  Serious: Yes (Hospitalization)
  Sender: FDA-Public Use
  Company Number: PHHO2007US16451

PATIENT
  Age: 27 Year
  Sex: Male
  Weight: 57.8 kg

DRUGS (4)
  1. *CGP 57148B* [Suspect]
     Indication: CHRONIC MYELOID LEUKAEMIA
     Dosage: 800MG DAILY
     Dates: start: 20040619
  2. *CGP 57148B* [Suspect]
     Dosage: UNK, NO TREATMENT
  3. *CGP 57148B* [Suspect]
     Dosage: 100MG DAILY
     Route: 048
  4. *CGP 57148B* [Suspect]
     Dosage: 500MG DAILY
     Route: 048

REACTIONS (3)
  - BLOOD CREATINE PHOSPHOKINASE INCREASED [None]
  - PAIN IN EXTREMITY [None]
  - RHABDOMYOLYSIS [None]
